FAERS Safety Report 10226390 (Version 1)
Quarter: 2014Q2

REPORT INFORMATION
  Report Type: Spontaneous
  Country: US (occurrence: US)
  Receive Date: 20140609
  Receipt Date: 20140609
  Transmission Date: 20141212
  Serious: No
  Sender: FDA-Public Use
  Company Number: US-AMGEN INC.-USASP2013042982

PATIENT
  Age: 60 Year
  Sex: Male

DRUGS (5)
  1. PROCRIT [Suspect]
     Indication: ANAEMIA
     Dosage: UNK UNK, QWK
     Route: 065
  2. INCIVEK [Suspect]
     Indication: HEPATITIS C
     Dosage: UNK
     Route: 048
     Dates: start: 20120919, end: 20121212
  3. RIBAVIRIN [Suspect]
     Indication: HEPATITIS C
     Dosage: UNK
     Dates: start: 20120610
  4. PEGASYS [Suspect]
     Indication: HEPATITIS C
     Dosage: UNK
     Dates: start: 20120610
  5. NEUPOGEN [Concomitant]
     Dosage: UNK UNK, 2 TIMES/WK

REACTIONS (2)
  - Platelet count decreased [Not Recovered/Not Resolved]
  - Gout [Recovered/Resolved]
